FAERS Safety Report 24557901 (Version 1)
Quarter: 2024Q4

REPORT INFORMATION
  Report Type: Spontaneous
  Country: US (occurrence: US)
  Receive Date: 20241028
  Receipt Date: 20241028
  Transmission Date: 20250115
  Serious: Yes (Hospitalization)
  Sender: MERCK
  Company Number: US-009507513-2410USA011585

PATIENT
  Age: 65 Year
  Sex: Female

DRUGS (6)
  1. WELIREG [Suspect]
     Active Substance: BELZUTIFAN
     Dosage: 120 MILLIGRAM, ONCE DAILY (QD)
     Route: 048
     Dates: start: 20241021, end: 20241021
  2. AMLODIPINE [Concomitant]
     Active Substance: AMLODIPINE BESYLATE
  3. ATORVASTATIN [Concomitant]
     Active Substance: ATORVASTATIN
  4. LEVOTHYROXINE [Concomitant]
     Active Substance: LEVOTHYROXINE
  5. OLANZAPINE [Concomitant]
     Active Substance: OLANZAPINE
  6. OXYCODONE [Concomitant]
     Active Substance: OXYCODONE

REACTIONS (1)
  - Pain [Not Recovered/Not Resolved]

NARRATIVE: CASE EVENT DATE: 20241001
